FAERS Safety Report 12221570 (Version 1)
Quarter: 2016Q1

REPORT INFORMATION
  Report Type: Spontaneous
  Country: US (occurrence: None)
  Receive Date: 20160329
  Receipt Date: 20160329
  Transmission Date: 20160526
  Serious: No
  Sender: FDA-Public Use
  Company Number: None

PATIENT
  Age: 74 Year
  Sex: Female
  Weight: 70.31 kg

DRUGS (7)
  1. VITAMIN D3 [Concomitant]
     Active Substance: CHOLECALCIFEROL
  2. DICYCLOMINE HCL 10MG -SUB FOR BENTYL -HEALTH MART. [Suspect]
     Active Substance: DICYCLOMINE HYDROCHLORIDE
     Indication: IRRITABLE BOWEL SYNDROME
     Dosage: 1 PILL ? HR BEFOR MEALS AS NEEDED MOUTH
     Route: 048
     Dates: end: 20160226
  3. CYMBALTA [Concomitant]
     Active Substance: DULOXETINE HYDROCHLORIDE
  4. CLORAZAPAN [Concomitant]
  5. LOPRESSOR [Concomitant]
     Active Substance: METOPROLOL TARTRATE
  6. POTASSIUM [Concomitant]
     Active Substance: POTASSIUM
  7. PRILOSEC [Concomitant]
     Active Substance: OMEPRAZOLE MAGNESIUM

REACTIONS (4)
  - Eye irritation [None]
  - Vision blurred [None]
  - Visual acuity reduced [None]
  - Insomnia [None]

NARRATIVE: CASE EVENT DATE: 20151111
